FAERS Safety Report 9109986 (Version 2)
Quarter: 2013Q1

REPORT INFORMATION
  Report Type: Spontaneous
  Country: US (occurrence: US)
  Receive Date: 20130222
  Receipt Date: 20130315
  Transmission Date: 20140127
  Serious: Yes (Hospitalization, Other)
  Sender: FDA-Public Use
  Company Number: US-009507513-1302USA010129

PATIENT
  Age: 63 Year
  Sex: Male
  Weight: 115 kg

DRUGS (10)
  1. EPTIFIBATIDE [Suspect]
     Indication: PLATELET AGGREGATION INHIBITION
     Dosage: 180 MICROGRAM PER KILOGRAM, ONCE
     Route: 040
     Dates: start: 20101201, end: 2010
  2. EPTIFIBATIDE [Suspect]
     Dosage: 2 MICROGRAMS/KILOGRAMS/MIN
  3. EPTIFIBATIDE [Suspect]
     Dosage: 180 MICROGRAM PER KILOGRAM, ONCE
     Route: 040
  4. EPTIFIBATIDE [Suspect]
     Dosage: 2 MICROGRAMS/KILOGRAMS/MINUTE, INFUSION FOR 18 HR
  5. LEVOTHYROXINE SODIUM [Concomitant]
     Indication: HYPOTHYROIDISM
     Dosage: 75 MICROGRAM, QD
  6. HEPARIN [Concomitant]
     Indication: THROMBOSIS PROPHYLAXIS
     Dosage: 5000 UNITS
     Route: 058
  7. HEPARIN [Concomitant]
     Dosage: 7000 UNITS, ONCE
     Route: 042
  8. ASPIRIN [Concomitant]
     Dosage: 325 MG, ONCE
  9. CLOPIDOGREL [Concomitant]
     Dosage: 600 MG, ONCE
  10. NITROGLYCERIN [Concomitant]
     Dosage: 10 MICROGRAM, UNK
     Route: 042

REACTIONS (11)
  - Heparin-induced thrombocytopenia [Recovered/Resolved]
  - Thrombosis [Recovered/Resolved]
  - Tachycardia [Recovered/Resolved]
  - Dilatation ventricular [Recovered/Resolved]
  - Anti-platelet antibody positive [Recovered/Resolved]
  - Pulmonary embolism [Recovered/Resolved]
  - Deep vein thrombosis [Recovered/Resolved]
  - Hypotension [Recovered/Resolved]
  - Tachypnoea [Recovered/Resolved]
  - Pulmonary embolism [Unknown]
  - Thrombocytopenia [Recovered/Resolved]
